FAERS Safety Report 21669165 (Version 1)
Quarter: 2022Q4

REPORT INFORMATION
  Report Type: Spontaneous
  Country: US (occurrence: None)
  Receive Date: 20221130
  Receipt Date: 20221130
  Transmission Date: 20230113
  Serious: Yes (Hospitalization)
  Sender: FDA-Public Use
  Company Number: None

PATIENT
  Age: 28 Year
  Sex: Female
  Weight: 56.7 kg

DRUGS (1)
  1. BEBTELOVIMAB [Suspect]
     Active Substance: BEBTELOVIMAB
     Indication: COVID-19
     Dosage: OTHER QUANTITY : 175 MG/ 2 ML;?FREQUENCY : ONCE;?
     Route: 042
     Dates: start: 20221120, end: 20221120

REACTIONS (1)
  - Syncope [None]

NARRATIVE: CASE EVENT DATE: 20221101
